FAERS Safety Report 6074266-9 (Version None)
Quarter: 2009Q1

REPORT INFORMATION
  Report Type: 
  Country: None (occurrence: None)
  Receive Date: 20090211
  Receipt Date: 20090203
  Transmission Date: 20090719
  Serious: Yes (Other)
  Sender: FDA-Public Use
  Company Number: US-ASTRAZENECA-2009UW03102

PATIENT
  Sex: Female

DRUGS (2)
  1. CRESTOR [Suspect]
     Route: 048
  2. ATENOLOL [Concomitant]
     Indication: ARRHYTHMIA

REACTIONS (11)
  - AMNESIA [None]
  - ARRHYTHMIA [None]
  - ARTHRALGIA [None]
  - DEPRESSION [None]
  - INSOMNIA [None]
  - IRRITABILITY [None]
  - LUPUS-LIKE SYNDROME [None]
  - MOOD SWINGS [None]
  - MUSCLE SPASMS [None]
  - RASH [None]
  - SWELLING [None]
